FAERS Safety Report 15490809 (Version 3)
Quarter: 2018Q4

REPORT INFORMATION
  Report Type: Spontaneous
  Country: US (occurrence: US)
  Receive Date: 20181011
  Receipt Date: 20181018
  Transmission Date: 20190205
  Serious: Yes (Other)
  Sender: FDA-Public Use
  Company Number: US-AMGEN-USASP2018140485

PATIENT
  Age: 22 Year
  Sex: Male

DRUGS (3)
  1. NPLATE [Suspect]
     Active Substance: ROMIPLOSTIM
     Dosage: 10 MG/KG, UNK
     Route: 065
  2. PREDNISONE. [Concomitant]
     Active Substance: PREDNISONE
     Dosage: UNK
     Dates: start: 2018, end: 2018
  3. NPLATE [Suspect]
     Active Substance: ROMIPLOSTIM
     Indication: IMMUNE THROMBOCYTOPENIC PURPURA
     Dosage: 8.7 MUG/KG, UNK
     Route: 065
     Dates: start: 20180720

REACTIONS (3)
  - Platelet count decreased [Unknown]
  - Drug specific antibody [Unknown]
  - Nausea [Unknown]

NARRATIVE: CASE EVENT DATE: 2018
